FAERS Safety Report 7006548-8 (Version None)
Quarter: 2010Q3

REPORT INFORMATION
  Report Type: 
  Country: None (occurrence: None)
  Receive Date: 20100921
  Receipt Date: 20080228
  Transmission Date: 20110219
  Serious: No
  Sender: FDA-Public Use
  Company Number: US-WYE-H02859408

PATIENT
  Sex: Male
  Weight: 15 kg

DRUGS (1)
  1. BENEFIX [Suspect]
     Indication: HAEMOPHILIA
     Route: 042

REACTIONS (3)
  - INJECTION SITE ERYTHEMA [None]
  - INJECTION SITE PAIN [None]
  - WRONG TECHNIQUE IN DRUG USAGE PROCESS [None]
